FAERS Safety Report 5595186-X (Version None)
Quarter: 2008Q1

REPORT INFORMATION
  Report Type: 
  Country: None (occurrence: None)
  Receive Date: 20080117
  Receipt Date: 20080108
  Transmission Date: 20080703
  Serious: Yes (Other)
  Sender: FDA-Public Use
  Company Number: KR-ABBOTT-08P-090-0432665-00

PATIENT

DRUGS (5)
  1. REMIFENTANIL [Suspect]
     Indication: ANALGESIA
  2. ROCURONIUM BROMIDE [Concomitant]
     Indication: INDUCTION OF ANAESTHESIA
     Route: 042
  3. THIOPENTAL SODIUM [Concomitant]
     Indication: INDUCTION OF ANAESTHESIA
  4. MIDAZOLAM HCL [Concomitant]
     Indication: PREMEDICATION
     Route: 042
  5. OXYGEN [Concomitant]
     Indication: DRUG USE FOR UNKNOWN INDICATION
     Dosage: 100% VIA MASK
     Route: 055

REACTIONS (1)
  - BREATH HOLDING [None]
